FAERS Safety Report 23193150 (Version 1)
Quarter: 2023Q4

REPORT INFORMATION
  Report Type: Report from Study
  Country: PA (occurrence: PA)
  Receive Date: 20231116
  Receipt Date: 20231116
  Transmission Date: 20240109
  Serious: Yes (Hospitalization)
  Sender: FDA-Public Use
  Company Number: PA-002147023-NVSC2023PA239844

PATIENT

DRUGS (2)
  1. RUXOLITINIB [Suspect]
     Active Substance: RUXOLITINIB
     Indication: Product used for unknown indication
     Dosage: 40 MG, BID (4 TABLET A.M. AND 4 TABLET P.M)
     Route: 048
     Dates: start: 20221007
  2. RUXOLITINIB [Suspect]
     Active Substance: RUXOLITINIB
     Dosage: 10 MG (1 TABLET A.M. AND 1 TABLET P.M.)
     Route: 065

REACTIONS (3)
  - Platelet count decreased [Unknown]
  - Haematuria [Recovered/Resolved]
  - Overdose [Unknown]
